FAERS Safety Report 8760924 (Version 1)
Quarter: 2012Q4

REPORT INFORMATION
  Report Type: 
  Country: FR (occurrence: FR)
  Receive Date: 20120830
  Receipt Date: 20120830
  Transmission Date: 20130627
  Serious: Yes (Other)
  Sender: FDA-Public Use
  Company Number: PHHY2012FR074772

PATIENT
  Age: 30 Year
  Sex: Female

DRUGS (1)
  1. VOLTARENE [Suspect]
     Route: 048

REACTIONS (2)
  - Systemic lupus erythematosus [Unknown]
  - Thrombocytopenia [Recovered/Resolved]
